FAERS Safety Report 21437503 (Version 2)
Quarter: 2022Q4

REPORT INFORMATION
  Report Type: Spontaneous
  Country: US (occurrence: US)
  Receive Date: 20221011
  Receipt Date: 20221013
  Transmission Date: 20230112
  Serious: No
  Sender: FDA-Public Use
  Company Number: US-NOVARTISTESTPH-NVSC2022US228560

PATIENT
  Sex: Female

DRUGS (1)
  1. XIIDRA [Suspect]
     Active Substance: LIFITEGRAST
     Indication: Product used for unknown indication
     Dosage: 5 % (AT X A DAY)
     Route: 065

REACTIONS (4)
  - Drug hypersensitivity [Unknown]
  - Ocular hyperaemia [Unknown]
  - Eye pain [Unknown]
  - Vision blurred [Unknown]
